FAERS Safety Report 12519210 (Version 3)
Quarter: 2016Q3

REPORT INFORMATION
  Report Type: Spontaneous
  Country: US (occurrence: US)
  Receive Date: 20160630
  Receipt Date: 20160829
  Transmission Date: 20161109
  Serious: No
  Sender: FDA-Public Use
  Company Number: US-BAYER-2016-124004

PATIENT
  Age: 58 Year
  Sex: Female

DRUGS (2)
  1. CLIMARA PRO [Suspect]
     Active Substance: ESTRADIOL\LEVONORGESTREL
     Indication: HORMONE REPLACEMENT THERAPY
     Dosage: UNK
     Route: 062
     Dates: start: 201506
  2. CLIMARA PRO [Suspect]
     Active Substance: ESTRADIOL\LEVONORGESTREL
     Indication: HORMONE REPLACEMENT THERAPY
     Dosage: UNK
     Route: 062
     Dates: start: 2015

REACTIONS (10)
  - Product quality issue [None]
  - Skin warm [None]
  - Fungal skin infection [None]
  - Application site dermatitis [None]
  - Device material issue [None]
  - Product adhesion issue [None]
  - Drug ineffective [None]
  - Condition aggravated [None]
  - Application site erythema [None]
  - Hot flush [None]
